FAERS Safety Report 8510386-4 (Version None)
Quarter: 2012Q3

REPORT INFORMATION
  Report Type: 
  Country: None (occurrence: None)
  Receive Date: 20120713
  Receipt Date: 20120713
  Transmission Date: 20120928
  Serious: Yes (Other)
  Sender: FDA-Public Use
  Company Number: US-ABBOTT-12P-163-0927036-00

PATIENT
  Age: 30 Year
  Sex: Female

DRUGS (2)
  1. KALETRA [Suspect]
     Indication: ANTIVIRAL TREATMENT
     Dosage: 4 TAB/CAPS DAILY; NOT USED AT CONCEPTION
     Route: 048
     Dates: start: 20110102, end: 20110309
  2. EPZICOM [Suspect]
     Indication: ANTIVIRAL TREATMENT
     Dosage: 1 TAB/CAPS DAILY; NOT USED AT CONCEPTION
     Route: 048
     Dates: start: 20110102, end: 20110309

REACTIONS (1)
  - STILLBIRTH [None]
